FAERS Safety Report 17464745 (Version 1)
Quarter: 2020Q1

REPORT INFORMATION
  Report Type: Spontaneous
  Country: US (occurrence: US)
  Receive Date: 20200226
  Receipt Date: 20200226
  Transmission Date: 20200409
  Serious: No
  Sender: FDA-Public Use
  Company Number: US-ROCHE-2431176

PATIENT
  Age: 35 Year
  Sex: Male

DRUGS (1)
  1. ALECENSA [Suspect]
     Active Substance: ALECTINIB HYDROCHLORIDE
     Indication: NON-SMALL CELL LUNG CANCER
     Route: 065
     Dates: start: 201903

REACTIONS (7)
  - Constipation [Unknown]
  - Photosensitivity reaction [Unknown]
  - Muscle fatigue [Unknown]
  - Blood bilirubin increased [Unknown]
  - Arthralgia [Unknown]
  - Weight increased [Unknown]
  - Ocular icterus [Unknown]
